FAERS Safety Report 9408961 (Version 1)
Quarter: 2013Q3

REPORT INFORMATION
  Report Type: Spontaneous
  Country: US (occurrence: None)
  Receive Date: 20130717
  Receipt Date: 20130717
  Transmission Date: 20140515
  Serious: Yes (Life-Threatening, Hospitalization)
  Sender: FDA-Public Use
  Company Number: None

PATIENT
  Age: 50 Year
  Sex: Male
  Weight: 97.07 kg

DRUGS (1)
  1. CRESTOR [Suspect]
     Indication: HYPERLIPIDAEMIA
     Dosage: 40MG  1 TABLET DAILY  PO
     Route: 048
     Dates: start: 20081001, end: 20130714

REACTIONS (7)
  - Alcohol use [None]
  - Fluid intake reduced [None]
  - Malaise [None]
  - Nausea [None]
  - Vomiting [None]
  - Rhabdomyolysis [None]
  - Renal failure acute [None]
